FAERS Safety Report 9458645 (Version 3)
Quarter: 2014Q2

REPORT INFORMATION
  Report Type: Spontaneous
  Country: US (occurrence: US)
  Receive Date: 20130814
  Receipt Date: 20140618
  Transmission Date: 20141212
  Serious: Yes (Other)
  Sender: FDA-Public Use
  Company Number: US-GLAXOSMITHKLINE-A1037000A

PATIENT
  Sex: Female
  Weight: 69.9 kg

DRUGS (8)
  1. BENLYSTA [Suspect]
     Indication: SYSTEMIC LUPUS ERYTHEMATOSUS
     Dosage: 10 MG/KG, Z
     Route: 042
     Dates: end: 20120815
  2. PLAQUENIL [Concomitant]
  3. IMURAN [Concomitant]
     Indication: SYSTEMIC LUPUS ERYTHEMATOSUS
     Dosage: 100 MG EVERY MORNING AND 50 MG EVERY EVENING
     Dates: start: 20120813, end: 20130610
  4. NSAIDS [Concomitant]
     Dates: start: 20110513, end: 20120901
  5. MYCOPHENOLATE [Concomitant]
     Dates: start: 20030510, end: 20120828
  6. ANTI-MALARIAL [Concomitant]
     Dates: start: 20030410
  7. FOLATE [Concomitant]
     Dates: start: 20030410
  8. PROGESTERONE [Concomitant]
     Dates: start: 20110120, end: 20120820

REACTIONS (3)
  - Pre-eclampsia [Recovered/Resolved]
  - Exposure during pregnancy [Unknown]
  - Live birth [Unknown]
